FAERS Safety Report 7435901-3 (Version None)
Quarter: 2011Q2

REPORT INFORMATION
  Report Type: 
  Country: None (occurrence: None)
  Receive Date: 20110425
  Receipt Date: 20110218
  Transmission Date: 20111010
  Serious: Yes (Other)
  Sender: FDA-Public Use
  Company Number: PHHY2011VE14840

PATIENT
  Sex: Female

DRUGS (3)
  1. ACLASTA [Suspect]
     Indication: OSTEOPOROSIS
     Dosage: 5 MG, YEARLY
     Dates: start: 20101004
  2. ASCORBIC ACID [Concomitant]
     Dosage: UNK
  3. CITRACAL [Concomitant]
     Dosage: UNK

REACTIONS (5)
  - SYNCOPE [None]
  - JOINT SWELLING [None]
  - DENGUE FEVER [None]
  - PAIN [None]
  - ARTHRALGIA [None]
